FAERS Safety Report 15296330 (Version 1)
Quarter: 2018Q3

REPORT INFORMATION
  Report Type: Spontaneous
  Country: US (occurrence: US)
  Receive Date: 20180807
  Receipt Date: 20180807
  Transmission Date: 20181010
  Serious: Yes (Hospitalization)
  Sender: FDA-Public Use
  Company Number: None

PATIENT
  Sex: Female

DRUGS (7)
  1. ENOXAPARIN [Suspect]
     Active Substance: ENOXAPARIN
     Indication: CYSTIC FIBROSIS
     Dosage: ?          OTHER FREQUENCY:Q 12 HOURS;?
     Route: 058
     Dates: start: 20180116
  2. REPLESTA, TRIMETHOBENZ [Concomitant]
  3. PULMOZYME [Suspect]
     Active Substance: DORNASE ALFA
     Indication: CYSTIC FIBROSIS
     Dosage: ?          OTHER ROUTE:INHALATION?
     Dates: start: 20171006
  4. LORAZEPAM, OMEPRAZOLE [Concomitant]
  5. ALBUTEROL, AZITHROMYCIN [Concomitant]
  6. METOCLOPRAM, RANITIDINE [Concomitant]
  7. SODIUM, SYMDEKO [Concomitant]

REACTIONS (1)
  - Lung infection [None]
